FAERS Safety Report 4922490-8 (Version None)
Quarter: 2006Q1

REPORT INFORMATION
  Report Type: 
  Country: None (occurrence: None)
  Receive Date: 20060224
  Receipt Date: 20051018
  Transmission Date: 20060701
  Serious: Yes (Death, Life-Threatening, Hospitalization)
  Sender: FDA-Public Use
  Company Number: IE-ROCHE-421514

PATIENT
  Age: 60 Year
  Sex: Female

DRUGS (2)
  1. CAPECITABINE [Suspect]
     Indication: BREAST CANCER
     Dosage: FREQUENCY NOT REPORTED
     Route: 048
     Dates: end: 20050728
  2. ENOXAPARIN SODIUM [Concomitant]
     Dates: start: 20040907

REACTIONS (7)
  - BREAST CANCER [None]
  - EMPYEMA [None]
  - MALIGNANT NEOPLASM PROGRESSION [None]
  - MYOCARDIAL ISCHAEMIA [None]
  - NEOPLASM MALIGNANT [None]
  - PLEURAL EFFUSION [None]
  - PULMONARY CONGESTION [None]
